FAERS Safety Report 14370149 (Version 1)
Quarter: 2018Q1

REPORT INFORMATION
  Report Type: Spontaneous
  Country: US (occurrence: US)
  Receive Date: 20180110
  Receipt Date: 20180110
  Transmission Date: 20180509
  Serious: No
  Sender: FDA-Public Use
  Company Number: US-ORCHID HEALTHCARE-2039782

PATIENT
  Age: 76 Year
  Sex: Female
  Weight: 46.32 kg

DRUGS (1)
  1. RASAGILINE MESYLATE. [Suspect]
     Active Substance: RASAGILINE MESYLATE
     Indication: PARKINSONISM
     Route: 048
     Dates: start: 2017, end: 20170727

REACTIONS (4)
  - Insomnia [Recovered/Resolved]
  - Confusional state [Recovered/Resolved]
  - Balance disorder [Recovering/Resolving]
  - Nausea [Recovered/Resolved]

NARRATIVE: CASE EVENT DATE: 201707
